FAERS Safety Report 25460166 (Version 1)
Quarter: 2025Q2

REPORT INFORMATION
  Report Type: Report from Study
  Country: CZ (occurrence: CZ)
  Receive Date: 20250620
  Receipt Date: 20250620
  Transmission Date: 20250716
  Serious: Yes (Other)
  Sender: AUROBINDO
  Company Number: CZ-AUROBINDO-AUR-APL-2025-025062

PATIENT
  Age: 24 Year
  Sex: Male
  Weight: 110 kg

DRUGS (20)
  1. OLANZAPINE [Suspect]
     Active Substance: OLANZAPINE
     Indication: Schizophrenia
     Dosage: 15 MILLIGRAM, ONCE A DAY
     Route: 048
     Dates: start: 202007
  2. OLANZAPINE [Suspect]
     Active Substance: OLANZAPINE
     Route: 065
     Dates: start: 202203
  3. OLANZAPINE [Suspect]
     Active Substance: OLANZAPINE
     Dosage: 2.5 MILLIGRAM, ONCE A DAY
     Route: 065
     Dates: start: 202310
  4. OLANZAPINE [Suspect]
     Active Substance: OLANZAPINE
     Dosage: 5 MILLIGRAM, ONCE A DAY
     Route: 065
     Dates: start: 202412
  5. SERTRALINE [Suspect]
     Active Substance: SERTRALINE HYDROCHLORIDE
     Indication: Schizophrenia
     Dosage: 50 MILLIGRAM, ONCE A DAY
     Route: 048
     Dates: start: 202007
  6. SERTRALINE [Suspect]
     Active Substance: SERTRALINE HYDROCHLORIDE
     Route: 065
     Dates: start: 202203
  7. SERTRALINE [Suspect]
     Active Substance: SERTRALINE HYDROCHLORIDE
     Route: 065
     Dates: start: 202206
  8. SERTRALINE [Suspect]
     Active Substance: SERTRALINE HYDROCHLORIDE
     Route: 065
     Dates: start: 202310
  9. CLONAZEPAM [Suspect]
     Active Substance: CLONAZEPAM
     Indication: Schizophrenia
     Route: 065
     Dates: start: 202007
  10. CLONAZEPAM [Suspect]
     Active Substance: CLONAZEPAM
     Route: 065
     Dates: start: 202203
  11. CLONAZEPAM [Suspect]
     Active Substance: CLONAZEPAM
     Dosage: 1 MILLIGRAM, ONCE A DAY
     Route: 065
     Dates: start: 202206
  12. CLONAZEPAM [Suspect]
     Active Substance: CLONAZEPAM
     Route: 065
  13. AMISULPRIDE [Suspect]
     Active Substance: AMISULPRIDE
     Indication: Schizophrenia
     Dosage: 500 MILLIGRAM, ONCE A DAY
     Route: 048
     Dates: start: 202007
  14. AMISULPRIDE [Suspect]
     Active Substance: AMISULPRIDE
     Dosage: 400 MILLIGRAM, ONCE A DAY
     Route: 048
     Dates: start: 202203
  15. AMISULPRIDE [Suspect]
     Active Substance: AMISULPRIDE
     Dosage: 200 MILLIGRAM, ONCE A DAY
     Route: 048
     Dates: start: 202203
  16. AMISULPRIDE [Suspect]
     Active Substance: AMISULPRIDE
     Dosage: 100 MILLIGRAM, ONCE A DAY
     Route: 048
     Dates: start: 202203
  17. CARIPRAZINE [Suspect]
     Active Substance: CARIPRAZINE
     Indication: Schizophrenia
     Dosage: 4.5 MILLIGRAM, ONCE A DAY
     Route: 065
     Dates: start: 202203
  18. CARIPRAZINE [Suspect]
     Active Substance: CARIPRAZINE
     Route: 065
     Dates: start: 202206
  19. CARIPRAZINE [Suspect]
     Active Substance: CARIPRAZINE
     Route: 065
     Dates: start: 202209
  20. CARIPRAZINE [Suspect]
     Active Substance: CARIPRAZINE
     Dosage: 4.5 MILLIGRAM, ONCE A DAY
     Route: 065
     Dates: start: 202412

REACTIONS (6)
  - Hallucination, auditory [Recovering/Resolving]
  - Weight increased [Unknown]
  - Extrapyramidal disorder [Recovered/Resolved]
  - Off label use [Unknown]
  - Therapeutic response decreased [Unknown]
  - Drug ineffective [Unknown]

NARRATIVE: CASE EVENT DATE: 20241201
